FAERS Safety Report 6706633-1 (Version None)
Quarter: 2010Q2

REPORT INFORMATION
  Report Type: 
  Country: None (occurrence: None)
  Receive Date: 20100430
  Receipt Date: 20100430
  Transmission Date: 20101027
  Serious: Yes (Other)
  Sender: FDA-Public Use
  Company Number: None

PATIENT
  Age: 57 Year
  Sex: Female
  Weight: 64.8644 kg

DRUGS (1)
  1. DRISDOL [Suspect]
     Indication: VITAMIN D DECREASED
     Dosage: 50000IU 1 WEEKLY FR 12 WKS PO
     Route: 048
     Dates: start: 20100403, end: 20100403

REACTIONS (28)
  - ABNORMAL BEHAVIOUR [None]
  - ASTHENIA [None]
  - BONE PAIN [None]
  - CONFUSIONAL STATE [None]
  - CONSTIPATION [None]
  - DECREASED APPETITE [None]
  - DRY MOUTH [None]
  - DYSGEUSIA [None]
  - DYSPNOEA [None]
  - FATIGUE [None]
  - FEAR [None]
  - FEELING HOT [None]
  - HEADACHE [None]
  - IMPAIRED DRIVING ABILITY [None]
  - IRRITABILITY [None]
  - LIP SWELLING [None]
  - MEMORY IMPAIRMENT [None]
  - MORBID THOUGHTS [None]
  - MYALGIA [None]
  - NAUSEA [None]
  - POLLAKIURIA [None]
  - PRURITUS [None]
  - SLEEP DISORDER [None]
  - SOMNOLENCE [None]
  - SWELLING FACE [None]
  - SWOLLEN TONGUE [None]
  - THINKING ABNORMAL [None]
  - URTICARIA [None]
